FAERS Safety Report 5452708-7 (Version None)
Quarter: 2007Q3

REPORT INFORMATION
  Report Type: 
  Country: None (occurrence: None)
  Receive Date: 20070914
  Receipt Date: 20070906
  Transmission Date: 20080115
  Serious: Yes (Hospitalization)
  Sender: FDA-Public Use
  Company Number: CA-ELI_LILLY_AND_COMPANY-CA200709001339

PATIENT
  Age: 52 Year
  Sex: Female

DRUGS (2)
  1. PREDNISONE TAB [Concomitant]
  2. FORTEO [Suspect]
     Indication: OSTEOPOROSIS
     Dosage: 20 UG, DAILY (1/D)
     Route: 058
     Dates: start: 20070322

REACTIONS (2)
  - HOSPITALISATION [None]
  - ILL-DEFINED DISORDER [None]
